FAERS Safety Report 6126198-5 (Version None)
Quarter: 2009Q1

REPORT INFORMATION
  Report Type: 
  Country: None (occurrence: None)
  Receive Date: 20090320
  Receipt Date: 20090312
  Transmission Date: 20090719
  Serious: Yes (Hospitalization)
  Sender: FDA-Public Use
  Company Number: B0564666A

PATIENT
  Age: 88 Year
  Sex: Female

DRUGS (1)
  1. ARIXTRA [Suspect]
     Indication: THROMBOSIS PROPHYLAXIS
     Dosage: 2.5MG PER DAY
     Route: 058
     Dates: start: 20080821, end: 20081029

REACTIONS (5)
  - ANAEMIA [None]
  - ATRIAL TACHYCARDIA [None]
  - DISORIENTATION [None]
  - HAEMATOMA [None]
  - INCORRECT DRUG ADMINISTRATION DURATION [None]
